FAERS Safety Report 20548214 (Version 1)
Quarter: 2022Q1

REPORT INFORMATION
  Report Type: Spontaneous
  Country: US (occurrence: US)
  Receive Date: 20220303
  Receipt Date: 20220303
  Transmission Date: 20220423
  Serious: No
  Sender: FDA-Public Use
  Company Number: US-SABAL THERAPEUTICS LLC-2022-ATH-000002

PATIENT
  Age: 48 Year
  Sex: Female

DRUGS (1)
  1. QDOLO [Suspect]
     Active Substance: TRAMADOL HYDROCHLORIDE
     Indication: Pain in extremity
     Dosage: 50 MG
     Route: 065

REACTIONS (2)
  - Muscle twitching [Recovered/Resolved]
  - Myoclonus [Recovered/Resolved]
